FAERS Safety Report 10224494 (Version 2)
Quarter: 2014Q3

REPORT INFORMATION
  Report Type: Spontaneous
  Country: IT (occurrence: IT)
  Receive Date: 20140609
  Receipt Date: 20140806
  Transmission Date: 20150326
  Serious: Yes (Other)
  Sender: FDA-Public Use
  Company Number: IT-SA-2014SA070418

PATIENT
  Age: 62 Year
  Sex: Male
  Weight: 77 kg

DRUGS (3)
  1. LEDERFOLIN [Concomitant]
     Active Substance: LEUCOVORIN CALCIUM
     Indication: GASTRIC CANCER
     Dosage: STRENGTH: 25 MG
     Route: 041
     Dates: start: 20130508, end: 20140305
  2. FLUOROURACIL. [Concomitant]
     Active Substance: FLUOROURACIL
     Indication: GASTRIC CANCER
     Dosage: STRENGTH: 50 MG/ML
     Route: 041
     Dates: start: 20130508, end: 20140305
  3. TAXOTERE [Suspect]
     Active Substance: DOCETAXEL
     Indication: GASTRIC CANCER
     Route: 041
     Dates: start: 20130918, end: 20140305

REACTIONS (1)
  - Onychomadesis [Recovering/Resolving]

NARRATIVE: CASE EVENT DATE: 20140102
